FAERS Safety Report 11157702 (Version 1)
Quarter: 2015Q2

REPORT INFORMATION
  Report Type: Spontaneous
  Country: GB (occurrence: None)
  Receive Date: 20150601
  Receipt Date: 20150601
  Transmission Date: 20150821
  Serious: Yes (Other)
  Sender: FDA-Public Use
  Company Number: FK201502454

PATIENT
  Age: 72 Year
  Sex: Male
  Weight: 79.9 kg

DRUGS (8)
  1. CISPLATIN (MANUFACTURER UNKNOWN) (CISPLATIN) (CISPLATIN) [Suspect]
     Active Substance: CISPLATIN
     Indication: GASTRIC CANCER
     Route: 042
     Dates: start: 20110202
  2. FERROUS SULFATE [Concomitant]
     Active Substance: FERROUS SULFATE\FERROUS SULFATE, DRIED
  3. EPIRUBICIN (MANUFACTURER UNKNOWN) (EPIRUBICIN HYDROCHLORIDE) (EPIRUBICIN HYDROCHLORIDE) [Suspect]
     Active Substance: EPIRUBICIN
     Indication: GASTRIC CANCER
     Route: 042
     Dates: start: 20110202
  4. LOSARTAN (LOSARTAN) [Concomitant]
     Active Substance: LOSARTAN
  5. XELODA [Suspect]
     Active Substance: CAPECITABINE
     Indication: GASTRIC CANCER
     Route: 048
  6. AVASTIN [Suspect]
     Active Substance: BEVACIZUMAB
     Indication: GASTRIC CANCER
     Route: 042
  7. ADCAL-D3 (CALCIUM CARBONATE) [Concomitant]
  8. FENOBRAT (FENOFIBRATE) [Concomitant]

REACTIONS (1)
  - Pericarditis [None]

NARRATIVE: CASE EVENT DATE: 20110223
